FAERS Safety Report 7304472-4 (Version None)
Quarter: 2011Q1

REPORT INFORMATION
  Report Type: 
  Country: None (occurrence: None)
  Receive Date: 20110221
  Receipt Date: 20110210
  Transmission Date: 20110831
  Serious: Yes (Other)
  Sender: FDA-Public Use
  Company Number: US-ASTRAZENECA-2009SE29784

PATIENT
  Age: 65 Year
  Sex: Female
  Weight: 59.9 kg

DRUGS (28)
  1. VALIUM [Concomitant]
     Indication: ANXIETY
  2. ASTILLIN [Concomitant]
     Indication: MULTIPLE ALLERGIES
     Dosage: AT NIGHT
  3. INSULIN [Concomitant]
     Indication: DIABETES MELLITUS
     Dosage: SLIDING SCALE AS REQUIRED
  4. NASONEX [Concomitant]
  5. PROGESTERON [Concomitant]
     Indication: HORMONE REPLACEMENT THERAPY
  6. TOPROL-XL [Suspect]
     Indication: CARDIOVASCULAR DISORDER
     Route: 048
     Dates: start: 20080901
  7. TOPROL-XL [Suspect]
     Route: 048
  8. TOPROL-XL [Suspect]
     Route: 048
  9. AZMACORT [Concomitant]
     Indication: ASTHMA
  10. PROGESTERON [Concomitant]
     Dosage: 0.65 DAILY
  11. HUMALOG [Concomitant]
     Indication: TYPE 1 DIABETES MELLITUS
  12. ALBUTEROL [Concomitant]
     Indication: ASTHMA
     Dosage: 5- 10 TIMES PER DAY
  13. TOPROL-XL [Suspect]
     Route: 048
  14. LISINOPRIL [Concomitant]
     Indication: HYPERTENSION
     Route: 048
  15. ASTELIN [Concomitant]
     Indication: ASTHMA
  16. CRESTOR [Suspect]
     Indication: HYPERCHOLESTEROLAEMIA
     Route: 048
  17. ASA [Concomitant]
     Indication: CARDIAC DISORDER
  18. VALIUM [Concomitant]
  19. LANTUS [Concomitant]
     Indication: TYPE 1 DIABETES MELLITUS
     Dosage: 10 UNITS
  20. VALIUM [Concomitant]
  21. TOPROL-XL [Suspect]
     Indication: HYPERTENSION
     Route: 048
     Dates: start: 20080901
  22. TOPROL-XL [Suspect]
     Route: 048
  23. CRESTOR [Suspect]
     Route: 048
  24. LISINOPRIL [Concomitant]
     Route: 048
  25. PREMARIN [Concomitant]
     Indication: HORMONE REPLACEMENT THERAPY
  26. PREMARIN [Concomitant]
     Dosage: 0.65 DAILY
  27. VALIUM [Concomitant]
     Indication: HYPOGLYCAEMIA
  28. NASACORT [Concomitant]
     Indication: ASTHMA
     Dosage: 1 SPRAY DAILY

REACTIONS (16)
  - SYNCOPE [None]
  - PRURITUS [None]
  - LOWER RESPIRATORY TRACT INFECTION [None]
  - VISION BLURRED [None]
  - DIZZINESS [None]
  - INCORRECT DOSE ADMINISTERED [None]
  - PARKINSONIAN GAIT [None]
  - SOMNOLENCE [None]
  - TENDON PAIN [None]
  - ACNE [None]
  - PHOTOPSIA [None]
  - MEMORY IMPAIRMENT [None]
  - BLINDNESS TRANSIENT [None]
  - MENTAL DISORDER [None]
  - PAIN IN EXTREMITY [None]
  - HEADACHE [None]
